FAERS Safety Report 6992549-2 (Version None)
Quarter: 2010Q3

REPORT INFORMATION
  Report Type: 
  Country: None (occurrence: None)
  Receive Date: 20100917
  Receipt Date: 20100909
  Transmission Date: 20110219
  Serious: Yes (Life-Threatening, Other)
  Sender: FDA-Public Use
  Company Number: GB-PFIZER INC-2007083015

PATIENT
  Sex: Female
  Weight: 62 kg

DRUGS (14)
  1. KETALAR [Suspect]
     Dosage: 4 MG/ML,1-6 ML/HOUR INFUSION
     Route: 042
     Dates: start: 20070921, end: 20070928
  2. NORETHISTERONE [Suspect]
     Route: 048
  3. VORICONAZOLE [Suspect]
     Route: 048
  4. PARACETAMOL [Suspect]
     Route: 042
  5. ONDANSETRON [Suspect]
     Route: 042
  6. ACICLOVIR [Suspect]
  7. ETOPOSIDE [Suspect]
     Route: 042
     Dates: start: 20070915, end: 20070915
  8. CASPOFUNGIN [Suspect]
     Route: 042
  9. CYCLOSPORINE [Suspect]
  10. CHLORPHENIRAMINE MALEATE [Suspect]
     Route: 042
  11. OMEPRAZOLE [Suspect]
  12. TAZOCIN [Suspect]
     Route: 042
  13. ALLOPURINOL [Suspect]
     Route: 048
  14. MORPHINE [Suspect]
     Route: 042

REACTIONS (4)
  - DILATATION INTRAHEPATIC DUCT ACQUIRED [None]
  - HEPATOTOXICITY [None]
  - LIVER FUNCTION TEST ABNORMAL [None]
  - VENOOCCLUSIVE DISEASE [None]
